FAERS Safety Report 25690271 (Version 2)
Quarter: 2025Q3

REPORT INFORMATION
  Report Type: Report from Study
  Country: EU (occurrence: EU)
  Receive Date: 20250818
  Receipt Date: 20250930
  Transmission Date: 20251021
  Serious: Yes (Hospitalization, Other)
  Sender: TAKEDA
  Company Number: EU-TAKEDA-2025TUS029465

PATIENT
  Age: 29 Year
  Sex: Female
  Weight: 62 kg

DRUGS (4)
  1. APADAMTASE ALFA [Suspect]
     Active Substance: APADAMTASE ALFA
     Indication: Congenital thrombotic thrombocytopenic purpura
     Dosage: 40 MILLIGRAM/KILOGRAM, Q2WEEKS
  2. APADAMTASE ALFA [Suspect]
     Active Substance: APADAMTASE ALFA
     Dosage: 40 INTERNATIONAL UNIT/KILOGRAM, 1/WEEK
  3. APADAMTASE ALFA [Suspect]
     Active Substance: APADAMTASE ALFA
     Dosage: 40 MILLIGRAM/KILOGRAM, 1/WEEK
  4. CYANOCOBALAMIN\FOLIC ACID [Concomitant]
     Active Substance: CYANOCOBALAMIN\FOLIC ACID
     Dosage: UNK UNK, QD
     Dates: start: 20250307

REACTIONS (4)
  - Haemolysis [Recovered/Resolved]
  - Thrombocytopenia [Unknown]
  - Thrombotic thrombocytopenic purpura [Unknown]
  - Pregnancy [Recovered/Resolved]
